FAERS Safety Report 11563661 (Version 1)
Quarter: 2015Q3

REPORT INFORMATION
  Report Type: Spontaneous
  Country: US (occurrence: US)
  Receive Date: 20150928
  Receipt Date: 20150928
  Transmission Date: 20151125
  Serious: No
  Sender: FDA-Public Use
  Company Number: US-PFIZER INC-2015320989

PATIENT
  Age: 81 Year
  Sex: Female

DRUGS (1)
  1. PREMARIN [Suspect]
     Active Substance: ESTROGENS, CONJUGATED
     Indication: VULVOVAGINAL PRURITUS
     Dosage: UNK
     Dates: start: 2009

REACTIONS (4)
  - Tremor [Recovered/Resolved]
  - Dizziness [Recovered/Resolved]
  - Psychomotor hyperactivity [Recovered/Resolved]
  - Nervousness [Recovered/Resolved]
